FAERS Safety Report 12937579 (Version 1)
Quarter: 2016Q4

REPORT INFORMATION
  Report Type: Spontaneous
  Country: PL (occurrence: PL)
  Receive Date: 20161114
  Receipt Date: 20161114
  Transmission Date: 20170207
  Serious: Yes (Other)
  Sender: FDA-Public Use
  Company Number: PL-CORDEN PHARMA LATINA S.P.A.-PL-2016COR000239

PATIENT
  Age: 76 Year
  Sex: Male

DRUGS (2)
  1. ETOPOSIDE. [Suspect]
     Active Substance: ETOPOSIDE
     Indication: LUNG NEOPLASM MALIGNANT
     Dosage: 1 X 170 MG, EVERY 3 DAYS
  2. CARBOPLATIN. [Suspect]
     Active Substance: CARBOPLATIN
     Indication: LUNG NEOPLASM MALIGNANT
     Dosage: 1 X 350 MG, EVERY 3 DAYS

REACTIONS (12)
  - Depression [Unknown]
  - Hypersensitivity [Recovering/Resolving]
  - Pain in extremity [Recovering/Resolving]
  - Neuropathy peripheral [Recovering/Resolving]
  - Activities of daily living impaired [Unknown]
  - Spinal pain [Recovering/Resolving]
  - Musculoskeletal pain [Recovering/Resolving]
  - Decreased appetite [Recovering/Resolving]
  - Pruritus [Recovering/Resolving]
  - Pain [Recovering/Resolving]
  - Groin pain [Recovering/Resolving]
  - Insomnia [Recovered/Resolved]

NARRATIVE: CASE EVENT DATE: 201307
